FAERS Safety Report 21683870 (Version 3)
Quarter: 2023Q2

REPORT INFORMATION
  Report Type: Spontaneous
  Country: JP (occurrence: JP)
  Receive Date: 20221205
  Receipt Date: 20230613
  Transmission Date: 20230722
  Serious: Yes (Death, Hospitalization, Other)
  Sender: FDA-Public Use
  Company Number: JP-BRISTOL-MYERS SQUIBB COMPANY-BMS-2017-107341

PATIENT
  Age: 52 Year
  Sex: Female
  Weight: 35.4 kg

DRUGS (6)
  1. OPDIVO [Suspect]
     Active Substance: NIVOLUMAB
     Indication: Gastric cancer
     Dosage: 3 MG/KG, SINGLE
     Route: 041
     Dates: start: 20171010, end: 20171010
  2. OPDIVO [Suspect]
     Active Substance: NIVOLUMAB
     Dosage: 3 MG/KG, Q2WK
     Route: 041
     Dates: start: 20171101, end: 20171101
  3. OPDIVO [Suspect]
     Active Substance: NIVOLUMAB
     Dosage: 3 MILLIGRAM/KILOGRAM, Q2WK
     Route: 041
     Dates: start: 20171115, end: 20171115
  4. OPDIVO [Suspect]
     Active Substance: NIVOLUMAB
     Dosage: 3 MILLIGRAM/KILOGRAM, SINGLE
     Route: 041
     Dates: start: 20171215, end: 20171215
  5. SAMSCA [Concomitant]
     Active Substance: TOLVAPTAN
     Indication: Ascites
     Route: 048
     Dates: start: 20170221, end: 20171129
  6. SPIRONOLACTONE [Concomitant]
     Active Substance: SPIRONOLACTONE
     Indication: Ascites
     Dosage: UNK
     Dates: start: 20170705, end: 20171204

REACTIONS (5)
  - Malignant neoplasm progression [Fatal]
  - Hypopituitarism [Recovering/Resolving]
  - Hypothyroidism [Recovering/Resolving]
  - Intentional product use issue [Unknown]
  - Secondary adrenocortical insufficiency [Recovering/Resolving]

NARRATIVE: CASE EVENT DATE: 20171014
